FAERS Safety Report 20483781 (Version 1)
Quarter: 2022Q1

REPORT INFORMATION
  Report Type: Other
  Country: US (occurrence: None)
  Receive Date: 20220217
  Receipt Date: 20220217
  Transmission Date: 20220423
  Serious: Yes (Hospitalization, Other)
  Sender: FDA-Public Use
  Company Number: US-ROCHE-3020136

PATIENT
  Age: 55 Year
  Sex: Female
  Weight: 79.450 kg

DRUGS (1)
  1. OCREVUS [Suspect]
     Active Substance: OCRELIZUMAB
     Indication: Relapsing multiple sclerosis
     Dosage: 14/JUL/2020, 20/JUL/2021
     Route: 042
     Dates: start: 20170801

REACTIONS (6)
  - COVID-19 [Not Recovered/Not Resolved]
  - Pneumonia [Unknown]
  - Multiple sclerosis relapse [Recovered/Resolved]
  - Nasal congestion [Not Recovered/Not Resolved]
  - SARS-CoV-2 antibody test negative [Not Recovered/Not Resolved]
  - Immunodeficiency [Unknown]

NARRATIVE: CASE EVENT DATE: 20210817
